FAERS Safety Report 9508421 (Version 1)
Quarter: 2013Q1

REPORT INFORMATION
  Report Type: Spontaneous
  Country: US (occurrence: None)
  Receive Date: 20130305
  Receipt Date: 20130305
  Transmission Date: 20140127
  Serious: Yes (Other)
  Sender: FDA-Public Use
  Company Number: 163-21880-10052333

PATIENT
  Age: 40 Year
  Sex: Male
  Weight: 89 kg

DRUGS (2)
  1. REVLIMID (LENALIDOMIDE) (25 MILLIGRAM, CAPSULES) [Suspect]
     Indication: PLASMA CELL MYELOMA
     Dosage: CAPSULE, 25 MG, 21 IN 28 D, PO
     Dates: start: 20100306
  2. DECADRON (DEXAMETHASONE) [Concomitant]

REACTIONS (5)
  - Neuropathy peripheral [None]
  - Hypoaesthesia [None]
  - Paraesthesia [None]
  - Diarrhoea [None]
  - Fatigue [None]
